FAERS Safety Report 8463543 (Version 2)
Quarter: 2012Q4

REPORT INFORMATION
  Report Type: 
  Country: US (occurrence: US)
  Receive Date: 20120316
  Receipt Date: 20120910
  Transmission Date: 20130627
  Serious: Yes (Other)
  Sender: FDA-Public Use
  Company Number: US-BAYER-2012-023450

PATIENT
  Age: 22 Year
  Sex: Female

DRUGS (3)
  1. YAZ [Suspect]
     Dosage: UNK
     Dates: start: 20090101, end: 2011
  2. SPRINTEC [Concomitant]
     Indication: CONTRACEPTION
     Dosage: UNK
     Dates: start: 2010
  3. CIPRO [Concomitant]
     Dosage: UNK
     Dates: start: 201105

REACTIONS (7)
  - Cholecystectomy [None]
  - General physical health deterioration [None]
  - Injury [None]
  - Pain [None]
  - Emotional distress [None]
  - Anxiety [None]
  - Anhedonia [None]
